FAERS Safety Report 12717754 (Version 1)
Quarter: 2016Q3

REPORT INFORMATION
  Report Type: Spontaneous
  Country: GB (occurrence: GB)
  Receive Date: 20160906
  Receipt Date: 20160906
  Transmission Date: 20161109
  Serious: Yes (Hospitalization, Other)
  Sender: FDA-Public Use
  Company Number: GB-JNJFOC-20160901984

PATIENT
  Sex: Male

DRUGS (3)
  1. OLANZAPINE. [Suspect]
     Active Substance: OLANZAPINE
     Indication: PRODUCT USED FOR UNKNOWN INDICATION
     Route: 065
  2. CLOZAPINE. [Suspect]
     Active Substance: CLOZAPINE
     Indication: PRODUCT USED FOR UNKNOWN INDICATION
     Route: 065
  3. RISPERIDONE. [Suspect]
     Active Substance: RISPERIDONE
     Indication: PRODUCT USED FOR UNKNOWN INDICATION
     Dosage: MEAN DOSE WAS 38.6% WITH SEVEN (17.1%) PATIENTS RECEIVING HIGH DOSE.
     Route: 065

REACTIONS (12)
  - Obesity [Unknown]
  - Hyperlipidaemia [Unknown]
  - Dyspepsia [Unknown]
  - Constipation [Unknown]
  - Salivary hypersecretion [Unknown]
  - Cardiovascular disorder [Unknown]
  - Asthma [Unknown]
  - Hypertension [Unknown]
  - Sedation [Unknown]
  - Chronic obstructive pulmonary disease [Unknown]
  - Renal failure [Unknown]
  - Diabetes mellitus [Unknown]
